FAERS Safety Report 7894399-1 (Version None)
Quarter: 2011Q4

REPORT INFORMATION
  Report Type: 
  Country: None (occurrence: None)
  Receive Date: 20111104
  Receipt Date: 20111027
  Transmission Date: 20120403
  Serious: Yes (Hospitalization)
  Sender: FDA-Public Use
  Company Number: IT-ASTRAZENECA-2011SE64993

PATIENT
  Age: 14635 Day
  Sex: Male

DRUGS (4)
  1. LENDORMIN [Suspect]
     Route: 048
     Dates: start: 20110621, end: 20110621
  2. SEROQUEL [Suspect]
     Route: 048
     Dates: start: 20110621, end: 20110621
  3. DEPAKENE [Suspect]
     Route: 048
     Dates: start: 20110621, end: 20110621
  4. DIAZEPAM [Suspect]
     Dosage: 0.5% DROPS ORAL SOLUTION 20 ML VIAL, USED 200 MG ONCE/SINGLE ADMINISTRATION
     Route: 048
     Dates: start: 20110621, end: 20110621

REACTIONS (3)
  - MULTIPLE DRUG OVERDOSE INTENTIONAL [None]
  - BRADYPHRENIA [None]
  - SOPOR [None]
